FAERS Safety Report 12105877 (Version 2)
Quarter: 2016Q1

REPORT INFORMATION
  Report Type: Spontaneous
  Country: DE (occurrence: DE)
  Receive Date: 20160223
  Receipt Date: 20160226
  Transmission Date: 20160526
  Serious: Yes (Hospitalization, Other)
  Sender: FDA-Public Use
  Company Number: DE-BAYER-2016-010729

PATIENT
  Age: 69 Year
  Sex: Male

DRUGS (17)
  1. PREDNISOLON [Concomitant]
     Active Substance: PREDNISOLONE
     Dosage: 2 MG, UNK
  2. BEROTEC [Concomitant]
     Active Substance: FENOTEROL HYDROBROMIDE
     Dosage: UNK
  3. HYDROMORPHONE [Concomitant]
     Active Substance: HYDROMORPHONE
     Dosage: UNK
  4. XARELTO [Interacting]
     Active Substance: RIVAROXABAN
     Indication: EMBOLISM VENOUS
     Dosage: 10 MG, QD
     Dates: start: 20151023, end: 20160113
  5. FEBUXOSTAT. [Concomitant]
     Active Substance: FEBUXOSTAT
     Dosage: 80 MG, QD
  6. VIGANTOLETTEN [Concomitant]
     Active Substance: CHOLECALCIFEROL
     Dosage: UNK
  7. XARELTO [Interacting]
     Active Substance: RIVAROXABAN
     Indication: PULMONARY EMBOLISM
     Dosage: 20 MG, UNK
  8. LASIX [Concomitant]
     Active Substance: FUROSEMIDE
     Dosage: 40 MG, QD
  9. XARELTO [Interacting]
     Active Substance: RIVAROXABAN
     Indication: PULMONARY EMBOLISM
     Dosage: UNK
     Dates: start: 201506
  10. NOVAMIN [Concomitant]
     Active Substance: PROCHLORPERAZINE MALEATE
     Dosage: 500 MG, TID
  11. MACROGOL [Concomitant]
     Active Substance: POLYETHYLENE GLYCOLS
     Dosage: UNK
  12. ACETYLSALICYLIC ACID({=100 MG) [Interacting]
     Active Substance: ASPIRIN
     Dosage: 100 MG, QD
     Dates: start: 20151023
  13. BRILIQUE [Suspect]
     Active Substance: TICAGRELOR
     Dosage: 90 MG, BID
     Dates: start: 20151023
  14. ESOMEPRAZOLE [Concomitant]
     Active Substance: ESOMEPRAZOLE
     Dosage: 40 MG, QD
  15. LYRICA [Concomitant]
     Active Substance: PREGABALIN
     Dosage: 25 MG, UNK
  16. ALENDRONIC ACID [Concomitant]
     Active Substance: ALENDRONIC ACID
     Dosage: UNK
  17. DIAZEPAM. [Concomitant]
     Active Substance: DIAZEPAM
     Dosage: 10 MG, UNK

REACTIONS (4)
  - Traumatic haemorrhage [Recovered/Resolved]
  - Drug interaction [None]
  - Acute myocardial infarction [Recovered/Resolved]
  - Off label use [None]

NARRATIVE: CASE EVENT DATE: 20151023
